FAERS Safety Report 6275017-5 (Version None)
Quarter: 2009Q3

REPORT INFORMATION
  Report Type: 
  Country: None (occurrence: None)
  Receive Date: 20090721
  Receipt Date: 20090709
  Transmission Date: 20100115
  Serious: Yes (Hospitalization, Other)
  Sender: FDA-Public Use
  Company Number: CZ-BAYER-200925422GPV

PATIENT
  Age: 62 Year
  Sex: Female

DRUGS (4)
  1. CIPROFLOXACIN [Suspect]
     Indication: PNEUMONIA ASPIRATION
     Route: 065
  2. CLARITHROMYCIN [Suspect]
     Indication: PNEUMONIA ASPIRATION
     Route: 065
  3. VANCOMYCIN [Suspect]
     Indication: PNEUMONIA ASPIRATION
     Route: 065
  4. CEFOTAXIME [Suspect]
     Indication: PNEUMONIA ASPIRATION
     Route: 065

REACTIONS (1)
  - PNEUMONIA ASPIRATION [None]
